FAERS Safety Report 18272166 (Version 1)
Quarter: 2020Q3

REPORT INFORMATION
  Report Type: Spontaneous
  Country: ES (occurrence: ES)
  Receive Date: 20200916
  Receipt Date: 20200916
  Transmission Date: 20201103
  Serious: Yes (Hospitalization)
  Sender: FDA-Public Use
  Company Number: ES-CADILA HEALTHCARE LIMITED-ES-ZYDUS-027661

PATIENT

DRUGS (2)
  1. SINTROM [Suspect]
     Active Substance: ACENOCOUMAROL
     Indication: ATRIAL FIBRILLATION
     Dosage: 13 MILLIGRAM,DTS: 13 (1/4 ON TUESDAYS, REST OF DAYS 1/2 COMP),(INTERVAL :1 WEEKS)
     Route: 048
     Dates: start: 20150922, end: 20171225
  2. LEVOFLOXACIN. [Suspect]
     Active Substance: LEVOFLOXACIN
     Indication: RESPIRATORY TRACT INFECTION
     Dosage: 500 MILLIGRAM,(INTERVAL :1 DAYS)
     Route: 048
     Dates: start: 20171220, end: 20171226

REACTIONS (2)
  - Abdominal wall haematoma [Recovering/Resolving]
  - Spontaneous haematoma [Recovering/Resolving]

NARRATIVE: CASE EVENT DATE: 20171222
